FAERS Safety Report 19614928 (Version 1)
Quarter: 2021Q3

REPORT INFORMATION
  Report Type: Spontaneous
  Country: US (occurrence: US)
  Receive Date: 20210727
  Receipt Date: 20210727
  Transmission Date: 20211014
  Serious: Yes (Hospitalization)
  Sender: FDA-Public Use
  Company Number: None

PATIENT
  Age: 69 Year
  Sex: Male
  Weight: 89.8 kg

DRUGS (3)
  1. CASIRIVIMAB/IMDEVIMAB [Suspect]
     Active Substance: CASIRIVIMAB\IMDEVIMAB
     Indication: COVID-19
     Dosage: ?          OTHER FREQUENCY:ONCE;?
     Route: 040
  2. METFORMIN 500 MG DAILY [Concomitant]
     Dates: start: 20200312
  3. LISINOPRIL 10 MG DAILY [Concomitant]
     Dates: start: 20200312, end: 20210724

REACTIONS (5)
  - Blood glucose increased [None]
  - Atrioventricular block first degree [None]
  - Syncope [None]
  - Oxygen saturation decreased [None]
  - Blood pressure increased [None]

NARRATIVE: CASE EVENT DATE: 20210724
